FAERS Safety Report 4638998-9 (Version None)
Quarter: 2005Q2

REPORT INFORMATION
  Report Type: 
  Country: None (occurrence: None)
  Receive Date: 20050419
  Receipt Date: 20041207
  Transmission Date: 20051028
  Serious: Yes (Hospitalization)
  Sender: FDA-Public Use
  Company Number: US-ROCHE-388659

PATIENT
  Age: 55 Year
  Sex: Male
  Weight: 52.2 kg

DRUGS (8)
  1. PEGASYS [Suspect]
     Indication: HEPATITIS C
     Route: 058
     Dates: start: 20040512, end: 20041207
  2. COPEGUS [Suspect]
     Indication: HEPATITIS C
     Route: 048
     Dates: start: 20040512, end: 20041207
  3. CLONAZEPAM [Suspect]
     Route: 065
  4. DEPAKOTE [Suspect]
     Indication: CONVULSION PROPHYLAXIS
     Dosage: 250 MG TAKEN AM AND 1500 MG AT BEDTIME.
     Route: 048
  5. DEPAKOTE [Suspect]
     Route: 048
  6. LISINOPRIL [Concomitant]
     Route: 048
  7. DIVALPROEX SODIUM [Concomitant]
     Route: 048
  8. CYPROHEPTADINE HCL [Concomitant]
     Route: 048

REACTIONS (5)
  - ANAEMIA [None]
  - CONVULSION [None]
  - DECREASED APPETITE [None]
  - FATIGUE [None]
  - PAIN [None]
